FAERS Safety Report 20675936 (Version 1)
Quarter: 2022Q2

REPORT INFORMATION
  Report Type: Spontaneous
  Country: US (occurrence: US)
  Receive Date: 20220405
  Receipt Date: 20220405
  Transmission Date: 20220721
  Serious: No
  Sender: FDA-Public Use
  Company Number: US-LUPIN PHARMACEUTICALS INC.-2022-03137

PATIENT
  Sex: Female

DRUGS (1)
  1. BUPROPION HYDROCHLORIDE XL [Suspect]
     Active Substance: BUPROPION HYDROCHLORIDE
     Indication: Product used for unknown indication
     Dosage: 300 MILLIGRAM, QD, IN THE MORNING WITH FOOD
     Route: 065
     Dates: start: 20220116

REACTIONS (10)
  - Irritability [Unknown]
  - Restlessness [Unknown]
  - Anxiety [Unknown]
  - Depressed mood [Unknown]
  - Disturbance in attention [Unknown]
  - Staring [Unknown]
  - Product substitution issue [Unknown]
  - Intrusive thoughts [Unknown]
  - Feeling cold [Unknown]
  - Drug ineffective [Unknown]

NARRATIVE: CASE EVENT DATE: 20220101
